FAERS Safety Report 8573428-6 (Version None)
Quarter: 2012Q3

REPORT INFORMATION
  Report Type: 
  Country: None (occurrence: None)
  Receive Date: 20120806
  Receipt Date: 20120802
  Transmission Date: 20120928
  Serious: No
  Sender: FDA-Public Use
  Company Number: US-PFIZER INC-2012188123

PATIENT
  Age: 15 Year
  Sex: Female

DRUGS (2)
  1. IBUPROFEN (ADVIL) [Suspect]
     Indication: BACK PAIN
     Dosage: 200 MG, ONCE DAILY
     Route: 048
  2. IBUPROFEN (ADVIL) [Suspect]
     Indication: MUSCLE SPASMS

REACTIONS (4)
  - HYPOAESTHESIA ORAL [None]
  - BURNING SENSATION [None]
  - DYSPHAGIA [None]
  - WRONG TECHNIQUE IN DRUG USAGE PROCESS [None]
